FAERS Safety Report 7429011-9 (Version None)
Quarter: 2011Q2

REPORT INFORMATION
  Report Type: 
  Country: None (occurrence: None)
  Receive Date: 20110421
  Receipt Date: 20110407
  Transmission Date: 20111010
  Serious: Yes (Other)
  Sender: FDA-Public Use
  Company Number: JP-BAYER-200911762BYL

PATIENT
  Age: 67 Year
  Sex: Male
  Weight: 62 kg

DRUGS (8)
  1. NEXAVAR [Suspect]
     Dosage: 800 MG (DAILY DOSE), , ORAL
     Route: 048
     Dates: start: 20090904
  2. NEXAVAR [Suspect]
     Dosage: 400 MG (DAILY DOSE), , ORAL
     Route: 048
     Dates: start: 20100402, end: 20100423
  3. NEXAVAR [Suspect]
     Dosage: 400 MG (DAILY DOSE), , ORAL
     Route: 048
     Dates: start: 20090529, end: 20090903
  4. NORVASC [Concomitant]
     Route: 048
     Dates: start: 20081205
  5. DRUG USED IN DIABETES [Concomitant]
     Route: 048
     Dates: start: 20081205
  6. NEXAVAR [Suspect]
     Indication: RENAL CELL CARCINOMA
     Route: 048
     Dates: start: 20090310, end: 20090528
  7. NEXAVAR [Suspect]
     Dosage: 400 MG (DAILY DOSE), , ORAL
     Route: 048
     Dates: start: 20100328
  8. PLETAL [Concomitant]
     Route: 048
     Dates: start: 20081205

REACTIONS (4)
  - DIARRHOEA [None]
  - LIVER DISORDER [None]
  - PALMAR-PLANTAR ERYTHRODYSAESTHESIA SYNDROME [None]
  - HEPATIC FUNCTION ABNORMAL [None]
